FAERS Safety Report 15465526 (Version 2)
Quarter: 2018Q4

REPORT INFORMATION
  Report Type: Report from Study
  Country: JP (occurrence: JP)
  Receive Date: 20181004
  Receipt Date: 20181122
  Transmission Date: 20190204
  Serious: Yes (Death, Life-Threatening, Hospitalization, Disabling, Other)
  Sender: FDA-Public Use
  Company Number: JP-009507513-1807JPN001885J

PATIENT
  Age: 80 Year
  Sex: Male
  Weight: 83 kg

DRUGS (9)
  1. FEBURIC [Concomitant]
     Active Substance: FEBUXOSTAT
     Dosage: 0.5 DF, QD
     Route: 048
  2. LOXOPROFEN NA [Concomitant]
     Active Substance: LOXOPROFEN SODIUM
     Dosage: 60 MILLIGRAM, TID
     Route: 048
  3. MUCOSTA [Concomitant]
     Active Substance: REBAMIPIDE
     Dosage: 100 MILLIGRAM, TID
     Route: 048
     Dates: start: 20180412, end: 20180502
  4. CISPLATIN. [Suspect]
     Active Substance: CISPLATIN
     Indication: TRANSITIONAL CELL CARCINOMA
     Dosage: 70 MG/M2, UNK
     Route: 041
     Dates: start: 20171109, end: 20180118
  5. GEMCITABINE [Suspect]
     Active Substance: GEMCITABINE\GEMCITABINE HYDROCHLORIDE
     Indication: TRANSITIONAL CELL CARCINOMA
     Dosage: 1000 MG/M2, UNK
     Route: 041
     Dates: start: 20171109, end: 20180118
  6. MUCOSTA [Concomitant]
     Active Substance: REBAMIPIDE
     Indication: PROPHYLAXIS
     Dosage: 100 MILLIGRAM, TID
     Route: 048
  7. PEMBROLIZUMAB. [Suspect]
     Active Substance: PEMBROLIZUMAB
     Indication: TRANSITIONAL CELL CARCINOMA
     Dosage: 200 MILLIGRAM, Q3W
     Route: 041
     Dates: start: 20180208, end: 20180412
  8. LOXOPROFEN NA [Concomitant]
     Active Substance: LOXOPROFEN SODIUM
     Dosage: 60 MILLIGRAM, TID
     Route: 048
     Dates: start: 20180412
  9. MICAMLO [Concomitant]
     Active Substance: AMLODIPINE BESYLATE\TELMISARTAN
     Dosage: 1 DF, QD
     Route: 048

REACTIONS (2)
  - Interstitial lung disease [Recovering/Resolving]
  - Malignant neoplasm progression [Fatal]

NARRATIVE: CASE EVENT DATE: 20180427
